FAERS Safety Report 4417718-7 (Version None)
Quarter: 2004Q3

REPORT INFORMATION
  Report Type: 
  Country: None (occurrence: None)
  Receive Date: 20040803
  Receipt Date: 20040721
  Transmission Date: 20050211
  Serious: Yes (Death)
  Sender: FDA-Public Use
  Company Number: 202428

PATIENT
  Age: 10 Year
  Sex: Male
  Weight: 88 kg

DRUGS (2)
  1. NUTROPIN AQ [Suspect]
     Indication: PRADER-WILLI SYNDROME
     Dosage: 1.7 MG, QD
     Dates: start: 20030701, end: 20030901
  2. VENTOLINE INHALER (ALBUTEROL, ALBUTEROL SULFATE) [Concomitant]

REACTIONS (2)
  - GENERAL PHYSICAL HEALTH DETERIORATION [None]
  - WEIGHT INCREASED [None]
